FAERS Safety Report 21101449 (Version 2)
Quarter: 2022Q3

REPORT INFORMATION
  Report Type: Spontaneous
  Country: JP (occurrence: JP)
  Receive Date: 20220719
  Receipt Date: 20220801
  Transmission Date: 20221027
  Serious: Yes (Hospitalization)
  Sender: FDA-Public Use
  Company Number: JP-TEVA-2022-JP-2055864

PATIENT
  Age: 19 Year
  Sex: Female

DRUGS (8)
  1. VANCOMYCIN [Suspect]
     Active Substance: VANCOMYCIN
     Indication: Staphylococcal bacteraemia
     Dosage: VIA CENTRAL VENOUS CATHETER
     Route: 042
  2. HYDROCORTISONE [Suspect]
     Active Substance: HYDROCORTISONE
     Indication: Adrenal insufficiency
     Dosage: 200 MILLIGRAM DAILY; VIA CENTRAL VENOUS CATHETER
     Route: 041
  3. BETAMETHASONE [Suspect]
     Active Substance: BETAMETHASONE
     Indication: Immunosuppressant drug therapy
     Dosage: TO WHOLE BODY
     Route: 061
  4. BETAMETHASONE [Suspect]
     Active Substance: BETAMETHASONE
     Indication: Ichthyosis
  5. HYDROCORTISONE [Suspect]
     Active Substance: HYDROCORTISONE
     Indication: Adrenal insufficiency
     Dosage: 90 MILLIGRAM DAILY;
     Route: 048
  6. PIPERACILLIN SODIUM\TAZOBACTAM SODIUM [Concomitant]
     Active Substance: PIPERACILLIN SODIUM\TAZOBACTAM SODIUM
     Indication: Streptococcal infection
     Dosage: VIA CENTRAL VENOUS CATHETER
     Route: 042
  7. PIPERACILLIN SODIUM\TAZOBACTAM SODIUM [Concomitant]
     Active Substance: PIPERACILLIN SODIUM\TAZOBACTAM SODIUM
     Indication: Pyelonephritis
  8. PIPERACILLIN SODIUM\TAZOBACTAM SODIUM [Concomitant]
     Active Substance: PIPERACILLIN SODIUM\TAZOBACTAM SODIUM
     Indication: Calculus bladder

REACTIONS (9)
  - Beta haemolytic streptococcal infection [Recovering/Resolving]
  - Calculus bladder [Recovering/Resolving]
  - Pyelonephritis [Recovering/Resolving]
  - Staphylococcal bacteraemia [Recovering/Resolving]
  - Vascular device infection [Recovering/Resolving]
  - Acinetobacter bacteraemia [Recovering/Resolving]
  - Drug ineffective [Recovering/Resolving]
  - Hypoglycaemia [Recovering/Resolving]
  - Endocarditis [Recovering/Resolving]
